FAERS Safety Report 10224308 (Version 1)
Quarter: 2014Q2

REPORT INFORMATION
  Report Type: Spontaneous
  Country: US (occurrence: US)
  Receive Date: 20140609
  Receipt Date: 20140609
  Transmission Date: 20141212
  Serious: No
  Sender: FDA-Public Use
  Company Number: US-PFIZER INC-2014156193

PATIENT
  Age: 51 Year
  Sex: Male
  Weight: 102.04 kg

DRUGS (1)
  1. CHANTIX [Suspect]
     Indication: SMOKING CESSATION THERAPY
     Dosage: UNK

REACTIONS (5)
  - Thinking abnormal [Unknown]
  - Frustration [Unknown]
  - Communication disorder [Unknown]
  - Abdominal pain upper [Unknown]
  - Agitation [Unknown]
